FAERS Safety Report 20036570 (Version 10)
Quarter: 2022Q4

REPORT INFORMATION
  Report Type: Report from Study
  Country: US (occurrence: US)
  Receive Date: 20211105
  Receipt Date: 20221226
  Transmission Date: 20230112
  Serious: No
  Sender: FDA-Public Use
  Company Number: US-NOVARTISTESTPH-NVSC2021US252027

PATIENT
  Age: 70 Year
  Sex: Female
  Weight: 97.052 kg

DRUGS (6)
  1. TREPROSTINIL [Suspect]
     Active Substance: TREPROSTINIL
     Indication: Pulmonary arterial hypertension
     Dosage: 103 NANOGRAM PER KILOGRAM, CONT (103 NG/KG/MIN)
     Route: 058
     Dates: start: 20210714
  2. TREPROSTINIL [Suspect]
     Active Substance: TREPROSTINIL
     Dosage: 103 NANOGRAM PER KILOGRAM, CONT (103 NG/KG/MIN)
     Route: 058
     Dates: start: 20210714
  3. TREPROSTINIL [Suspect]
     Active Substance: TREPROSTINIL
     Dosage: 103 NANOGRAM PER KILOGRAM, CONT
     Route: 058
     Dates: start: 20210714
  4. TADALAFIL [Concomitant]
     Active Substance: TADALAFIL
     Indication: Product used for unknown indication
     Dosage: UNK
     Route: 065
  5. ADCIRCA [Concomitant]
     Active Substance: TADALAFIL
     Indication: Pulmonary arterial hypertension
     Dosage: UNK
     Route: 065
  6. REMODULIN [Concomitant]
     Active Substance: TREPROSTINIL
     Indication: Product used for unknown indication
     Dosage: UNK
     Route: 065

REACTIONS (19)
  - Upper respiratory tract infection [Unknown]
  - Respiration abnormal [Unknown]
  - Anxiety [Unknown]
  - Abdominal pain upper [Unknown]
  - Weight decreased [Unknown]
  - Abdominal discomfort [Unknown]
  - Feeling abnormal [Unknown]
  - Malaise [Unknown]
  - Laryngitis [Unknown]
  - Ear infection [Unknown]
  - Nausea [Unknown]
  - Asthenia [Recovering/Resolving]
  - Headache [Unknown]
  - SARS-CoV-2 antibody test positive [Unknown]
  - Respiratory symptom [Unknown]
  - Product dose omission issue [Unknown]
  - Device issue [Unknown]
  - Incorrect dose administered [Unknown]
  - Device delivery system issue [Unknown]

NARRATIVE: CASE EVENT DATE: 20221216
